FAERS Safety Report 5468232-1 (Version None)
Quarter: 2007Q3

REPORT INFORMATION
  Report Type: 
  Country: None (occurrence: None)
  Receive Date: 20070926
  Receipt Date: 20070917
  Transmission Date: 20080115
  Serious: Yes (Hospitalization)
  Sender: FDA-Public Use
  Company Number: IT-GENENTECH-247841

PATIENT
  Sex: Male

DRUGS (10)
  1. RITUXAN [Suspect]
     Indication: DERMATOMYOSITIS
     Dosage: 300 MG, 1/WEEK
     Route: 042
     Dates: start: 20070911, end: 20070911
  2. PREDNISONE [Concomitant]
     Indication: DRUG USE FOR UNKNOWN INDICATION
     Dosage: 5 MG, QD
  3. CALCIUM FOLINATE [Concomitant]
     Indication: DRUG USE FOR UNKNOWN INDICATION
     Dosage: 7.5 MG, 1/WEEK
  4. METHOTREXATE [Concomitant]
     Indication: DRUG USE FOR UNKNOWN INDICATION
  5. OMEPRAZOLE [Concomitant]
     Indication: DRUG USE FOR UNKNOWN INDICATION
  6. COTRIMEL [Concomitant]
     Indication: DRUG USE FOR UNKNOWN INDICATION
     Dosage: 48 MG, QOD
  7. MAALOX REGULAR LIQUID [Concomitant]
     Indication: DRUG USE FOR UNKNOWN INDICATION
     Dosage: 10 ML, TID
  8. PLAQUENIL [Concomitant]
     Indication: DRUG USE FOR UNKNOWN INDICATION
     Dosage: 150 MG, QD
  9. CALCIUM CARBONATE OR COMPARATOR [Concomitant]
     Indication: DRUG USE FOR UNKNOWN INDICATION
  10. COLECALCIFEROL [Concomitant]
     Indication: DRUG USE FOR UNKNOWN INDICATION

REACTIONS (4)
  - CHILLS [None]
  - CYANOSIS [None]
  - PYREXIA [None]
  - VOMITING [None]
